FAERS Safety Report 21664391 (Version 1)
Quarter: 2022Q4

REPORT INFORMATION
  Report Type: Spontaneous
  Country: CN (occurrence: CN)
  Receive Date: 20221130
  Receipt Date: 20221130
  Transmission Date: 20230112
  Serious: Yes (Death, Hospitalization, Other)
  Sender: FDA-Public Use
  Company Number: CN-SLATE RUN PHARMACEUTICALS-22CN001427

PATIENT

DRUGS (10)
  1. GANCICLOVIR [Suspect]
     Active Substance: GANCICLOVIR
     Indication: Cytomegalovirus infection
     Dosage: UNK
  2. GANCICLOVIR [Suspect]
     Active Substance: GANCICLOVIR
     Dosage: 5 MILLIGRAM PER KILOGRAM, BID
  3. VALGANCICLOVIR [Suspect]
     Active Substance: VALGANCICLOVIR
     Indication: Cytomegalovirus infection
     Dosage: 16 MILLIGRAM PER KILOGRAM, BID
     Route: 048
  4. ISONIAZID [Concomitant]
     Active Substance: ISONIAZID
     Indication: Tuberculosis
  5. RIFAMPIN [Concomitant]
     Active Substance: RIFAMPIN
     Indication: Tuberculosis
  6. ETHAMBUTOL [Concomitant]
     Active Substance: ETHAMBUTOL HYDROCHLORIDE
     Indication: Tuberculosis
  7. PYRAZINAMIDE [Concomitant]
     Active Substance: PYRAZINAMIDE
     Indication: Tuberculosis
  8. VANCOMYCIN [Concomitant]
     Active Substance: VANCOMYCIN
     Indication: Antibiotic therapy
  9. MEROPENEM [Concomitant]
     Active Substance: MEROPENEM
     Indication: Antibiotic therapy
  10. CEFOPERAZONE SODIUM\SULBACTAM [Concomitant]
     Active Substance: CEFOPERAZONE SODIUM\SULBACTAM
     Indication: Antibiotic therapy

REACTIONS (21)
  - Disseminated cytomegaloviral infection [Fatal]
  - Septic shock [Fatal]
  - Neonatal respiratory failure [Fatal]
  - Delayed myelination [Unknown]
  - Left ventricular enlargement [Unknown]
  - Choroidal effusion [Unknown]
  - Necrotising retinitis [Unknown]
  - Lymphopenia [Unknown]
  - Neonatal pneumonia [Unknown]
  - Developmental regression [Unknown]
  - Pneumothorax [Unknown]
  - Subcutaneous emphysema [Unknown]
  - Retinal detachment [Unknown]
  - Anaemia [Unknown]
  - Hepatic function abnormal [Unknown]
  - Visual impairment [Unknown]
  - Somnolence [Unknown]
  - Weight decreased [Unknown]
  - Off label use [Unknown]
  - Pathogen resistance [Unknown]
  - Treatment failure [Unknown]
